FAERS Safety Report 12104147 (Version 3)
Quarter: 2016Q1

REPORT INFORMATION
  Report Type: Spontaneous
  Country: JP (occurrence: JP)
  Receive Date: 20160223
  Receipt Date: 20160316
  Transmission Date: 20160526
  Serious: Yes (Death)
  Sender: FDA-Public Use
  Company Number: PHJP2016JP003528

PATIENT
  Age: 58 Year
  Sex: Male

DRUGS (36)
  1. BFLUID [Concomitant]
     Active Substance: AMINO ACIDS\DEXTROSE\ELECTROLYTES NOS\VITAMINS
     Dosage: 500 ML, BID
     Route: 042
     Dates: start: 20160216, end: 20160216
  2. BISOLVON [Concomitant]
     Active Substance: BROMHEXINE HYDROCHLORIDE
     Dosage: 4 MG, BID
     Route: 065
     Dates: start: 20160215, end: 20160215
  3. ACELIO [Concomitant]
     Active Substance: ACETAMINOPHEN
     Dosage: 500 MG, UNK
     Route: 042
     Dates: start: 20160203, end: 20160203
  4. ACELIO [Concomitant]
     Active Substance: ACETAMINOPHEN
     Dosage: UNK, PRN
     Dates: start: 20160204, end: 20160204
  5. CYTARABINE. [Concomitant]
     Active Substance: CYTARABINE
     Indication: PRODUCT USED FOR UNKNOWN INDICATION
     Dosage: 40 MG, QD
     Route: 065
     Dates: start: 20160210, end: 20160210
  6. PANTOL [Concomitant]
     Active Substance: DEXPANTHENOL
     Dosage: 1000 MG, BID
     Route: 065
     Dates: start: 20160216, end: 20160216
  7. PANTOL [Concomitant]
     Active Substance: DEXPANTHENOL
     Dosage: 1500 MG, UNK
     Dates: start: 20160216, end: 20160216
  8. PRIMPERAN [Concomitant]
     Active Substance: METOCLOPRAMIDE HYDROCHLORIDE
     Indication: PRODUCT USED FOR UNKNOWN INDICATION
     Dosage: 10 MG, QD
     Route: 065
     Dates: start: 20160203, end: 20160203
  9. BAKTAR [Concomitant]
     Active Substance: SULFAMETHOXAZOLE\TRIMETHOPRIM
     Dosage: UNK
     Route: 048
     Dates: start: 20160206, end: 20160216
  10. BISOLVON [Concomitant]
     Active Substance: BROMHEXINE HYDROCHLORIDE
     Indication: PRODUCT USED FOR UNKNOWN INDICATION
     Dosage: 4 MG, BID
     Route: 065
     Dates: start: 20160125, end: 20160208
  11. BISOLVON [Concomitant]
     Active Substance: BROMHEXINE HYDROCHLORIDE
     Dosage: 4 MG, QD
     Route: 065
     Dates: start: 20160216, end: 20160216
  12. ACELIO [Concomitant]
     Active Substance: ACETAMINOPHEN
     Dosage: UNK UNK, PRN
     Route: 042
     Dates: start: 20160214, end: 20160214
  13. URSO [Concomitant]
     Active Substance: URSODIOL
     Indication: PRODUCT USED FOR UNKNOWN INDICATION
     Dosage: 50 MG, QD
     Route: 048
     Dates: start: 20160207, end: 20160216
  14. TASIGNA [Suspect]
     Active Substance: NILOTINIB
     Indication: CHRONIC MYELOID LEUKAEMIA
     Dosage: 600 MG, UNK
     Route: 048
     Dates: start: 20160202, end: 20160204
  15. BESACOLIN [Concomitant]
     Active Substance: BETHANECHOL CHLORIDE
     Indication: PRODUCT USED FOR UNKNOWN INDICATION
     Dosage: UNK
     Route: 048
     Dates: start: 20160125, end: 20160204
  16. HARNAL [Concomitant]
     Active Substance: TAMSULOSIN HYDROCHLORIDE
     Indication: PRODUCT USED FOR UNKNOWN INDICATION
     Dosage: UNK
     Route: 048
     Dates: start: 20160125, end: 20160204
  17. FAMOTIDINE. [Concomitant]
     Active Substance: FAMOTIDINE
     Indication: PRODUCT USED FOR UNKNOWN INDICATION
     Dosage: 20 MG, BID
     Route: 042
     Dates: start: 20160125, end: 20160128
  18. METHOTREXATE [Concomitant]
     Active Substance: METHOTREXATE
     Indication: PRODUCT USED FOR UNKNOWN INDICATION
     Dosage: 15 MG, QD
     Route: 048
     Dates: start: 20160210, end: 20160210
  19. DEXART [Concomitant]
     Active Substance: DEXAMETHASONE SODIUM PHOSPHATE
     Indication: PRODUCT USED FOR UNKNOWN INDICATION
     Dosage: 3.3 MG, QD
     Route: 065
     Dates: start: 20160210, end: 20160210
  20. DAIKENCHUTO [Concomitant]
     Active Substance: HERBALS
     Dosage: UNK
     Route: 048
     Dates: start: 20160206, end: 20160216
  21. HEPARIN [Concomitant]
     Active Substance: HEPARIN SODIUM
     Indication: PRODUCT USED FOR UNKNOWN INDICATION
     Dosage: 10 ML, TID
     Route: 065
     Dates: start: 20160125, end: 20160125
  22. PRIMPERAN [Concomitant]
     Active Substance: METOCLOPRAMIDE HYDROCHLORIDE
     Dosage: 10 MG, TID
     Route: 065
     Dates: start: 20160210, end: 20160215
  23. LACTEC                             /00490001/ [Concomitant]
     Dosage: 500 ML, QD
     Route: 065
     Dates: start: 20160215, end: 20160216
  24. DAIKENCHUTO [Concomitant]
     Active Substance: HERBALS
     Indication: PRODUCT USED FOR UNKNOWN INDICATION
     Dosage: UNK
     Route: 048
     Dates: start: 20160201, end: 20160204
  25. ACELIO [Concomitant]
     Active Substance: ACETAMINOPHEN
     Dosage: UNK UNK, PRN
     Route: 042
     Dates: start: 20160213, end: 20160213
  26. TASIGNA [Suspect]
     Active Substance: NILOTINIB
     Dosage: 600 MG, UNK
     Route: 048
     Dates: start: 20160206
  27. HARNAL [Concomitant]
     Active Substance: TAMSULOSIN HYDROCHLORIDE
     Dosage: UNK
     Route: 048
     Dates: start: 20160206, end: 20160216
  28. BAKTAR [Concomitant]
     Active Substance: SULFAMETHOXAZOLE\TRIMETHOPRIM
     Indication: PRODUCT USED FOR UNKNOWN INDICATION
     Dosage: UNK
     Route: 048
     Dates: start: 20160125, end: 20160204
  29. PARIET [Concomitant]
     Active Substance: RABEPRAZOLE SODIUM
     Dosage: UNK
     Route: 048
     Dates: start: 20160206, end: 20160216
  30. PANTOL [Concomitant]
     Active Substance: DEXPANTHENOL
     Indication: PRODUCT USED FOR UNKNOWN INDICATION
     Dosage: 1000 MG, TID
     Route: 065
     Dates: start: 20160125, end: 20160215
  31. LACTEC                             /00490001/ [Concomitant]
     Indication: PRODUCT USED FOR UNKNOWN INDICATION
     Dosage: 500 ML, QD
     Route: 065
     Dates: start: 20160206, end: 20160206
  32. BFLUID [Concomitant]
     Active Substance: AMINO ACIDS\DEXTROSE\ELECTROLYTES NOS\VITAMINS
     Indication: PRODUCT USED FOR UNKNOWN INDICATION
     Dosage: 500 ML, TID
     Route: 042
     Dates: start: 20160125, end: 20160215
  33. BISOLVON [Concomitant]
     Active Substance: BROMHEXINE HYDROCHLORIDE
     Dosage: 4 MG, QD
     Route: 065
     Dates: start: 20160214, end: 20160214
  34. ACELIO [Concomitant]
     Active Substance: ACETAMINOPHEN
     Indication: PRODUCT USED FOR UNKNOWN INDICATION
     Dosage: UNK UNK, PRN
     Route: 042
     Dates: start: 20160125, end: 20160125
  35. BESACOLIN [Concomitant]
     Active Substance: BETHANECHOL CHLORIDE
     Dosage: UNK
     Route: 048
     Dates: start: 20160206, end: 20160216
  36. PARIET [Concomitant]
     Active Substance: RABEPRAZOLE SODIUM
     Indication: PRODUCT USED FOR UNKNOWN INDICATION
     Dosage: UNK
     Route: 048
     Dates: start: 20160128, end: 20160204

REACTIONS (5)
  - Pneumonia bacterial [Fatal]
  - Acute respiratory distress syndrome [Fatal]
  - Respiratory failure [Fatal]
  - Pyrexia [Fatal]
  - Dyspnoea [Fatal]

NARRATIVE: CASE EVENT DATE: 201602
